FAERS Safety Report 8362911-4 (Version None)
Quarter: 2012Q1

REPORT INFORMATION
  Report Type: 
  Country: None (occurrence: None)
  Receive Date: 20120323
  Receipt Date: 20110606
  Transmission Date: 20120608
  Serious: Yes (Hospitalization)
  Sender: FDA-Public Use
  Company Number: 163-21880-11042807

PATIENT
  Age: 67 Year
  Sex: Male

DRUGS (7)
  1. DECADRON [Concomitant]
  2. REVLIMID [Suspect]
     Indication: MYELOMA RECURRENCE
     Dosage: 10 MG, 1 IN 1 D, PO
     Route: 048
     Dates: start: 20110201, end: 20110408
  3. ADVAIR DISKUS 100/50 [Concomitant]
  4. DUONEB [Concomitant]
  5. SEPTRA DS [Concomitant]
  6. VALTREX [Concomitant]
  7. CELEXA [Concomitant]

REACTIONS (1)
  - PULMONARY EMBOLISM [None]
